FAERS Safety Report 21063989 (Version 2)
Quarter: 2022Q3

REPORT INFORMATION
  Report Type: Report from Study
  Country: US (occurrence: US)
  Receive Date: 20220711
  Receipt Date: 20220828
  Transmission Date: 20221027
  Serious: Yes (Hospitalization, Other)
  Sender: FDA-Public Use
  Company Number: US-Accord-268441

PATIENT
  Sex: Male

DRUGS (1)
  1. CLOZAPINE [Suspect]
     Active Substance: CLOZAPINE
     Indication: Schizoaffective disorder bipolar type
     Route: 048
     Dates: start: 2021

REACTIONS (1)
  - Schizophrenia [Recovered/Resolved]
